FAERS Safety Report 9632832 (Version 1)
Quarter: 2013Q4

REPORT INFORMATION
  Report Type: Spontaneous
  Country: FR (occurrence: FR)
  Receive Date: 20131018
  Receipt Date: 20131018
  Transmission Date: 20140711
  Serious: Yes (Other)
  Sender: FDA-Public Use
  Company Number: FR-GILEAD-2013-0085650

PATIENT
  Age: 30 Year
  Sex: Male

DRUGS (3)
  1. ATRIPLA [Suspect]
     Indication: HIV INFECTION
     Dosage: UNK
     Route: 048
     Dates: start: 201308, end: 20131015
  2. COMBIVIR [Concomitant]
  3. EFAVIRENZ [Concomitant]

REACTIONS (2)
  - Neutropenia [Not Recovered/Not Resolved]
  - Transaminases increased [Not Recovered/Not Resolved]
